FAERS Safety Report 7235867-5 (Version None)
Quarter: 2011Q1

REPORT INFORMATION
  Report Type: 
  Country: None (occurrence: None)
  Receive Date: 20110120
  Receipt Date: 20110113
  Transmission Date: 20110831
  Serious: No
  Sender: FDA-Public Use
  Company Number: BR-ROCHE-753368

PATIENT
  Age: 34 Year
  Sex: Female
  Weight: 57 kg

DRUGS (2)
  1. ROACUTAN [Suspect]
     Route: 048
     Dates: start: 20100101, end: 20110112
  2. ROACUTAN [Suspect]
     Indication: ACNE
     Dosage: 20 MG EVERY OTHER DAY
     Route: 048
     Dates: start: 20100901

REACTIONS (2)
  - PREGNANCY [None]
  - NO ADVERSE EVENT [None]
